FAERS Safety Report 8896106 (Version 2)
Quarter: 2012Q4

REPORT INFORMATION
  Report Type: 
  Country: JP (occurrence: JP)
  Receive Date: 20121108
  Receipt Date: 20121211
  Transmission Date: 20130627
  Serious: Yes (Hospitalization)
  Sender: FDA-Public Use
  Company Number: JP-ROCHE-1151927

PATIENT
  Age: 14 Year
  Sex: Male
  Weight: 43 kg

DRUGS (8)
  1. ROCEPHIN [Suspect]
     Indication: MENINGITIS BACTERIAL
     Route: 042
     Dates: start: 20120419, end: 20120427
  2. ROCEPHIN [Suspect]
     Indication: MENINGITIS BACTERIAL
     Route: 042
     Dates: start: 20120503, end: 20120504
  3. MEROPENEM [Suspect]
     Indication: MENINGITIS BACTERIAL
     Route: 042
     Dates: start: 20120420, end: 20120503
  4. VANCOMYCIN [Concomitant]
     Indication: MENINGITIS BACTERIAL
     Route: 042
     Dates: start: 20120419, end: 20120501
  5. DALACIN S [Concomitant]
     Indication: MENINGITIS BACTERIAL
     Route: 042
     Dates: start: 20120503, end: 20120507
  6. DECADRON [Concomitant]
     Route: 042
     Dates: start: 20120419, end: 20120420
  7. MANNITOL [Concomitant]
     Indication: BRAIN OEDEMA
     Route: 042
     Dates: start: 20120419, end: 20120425
  8. PRECEDEX [Concomitant]
     Indication: SEDATION
     Route: 041
     Dates: start: 20120420, end: 20120427

REACTIONS (2)
  - Rash generalised [Recovered/Resolved]
  - Cerebral haemorrhage [Recovered/Resolved with Sequelae]
